FAERS Safety Report 16648285 (Version 1)
Quarter: 2019Q3

REPORT INFORMATION
  Report Type: Report from Study
  Country: RO (occurrence: RO)
  Receive Date: 20190730
  Receipt Date: 20190730
  Transmission Date: 20191004
  Serious: Yes (Death)
  Sender: FDA-Public Use
  Company Number: RO-MYLANLABS-2019M1071372

PATIENT
  Age: 63 Year
  Sex: Male
  Weight: 64 kg

DRUGS (1)
  1. ERLOTINIB [Suspect]
     Active Substance: ERLOTINIB
     Indication: LUNG DISORDER
     Dosage: 150 MILLIGRAM, QD
     Route: 065
     Dates: start: 201805

REACTIONS (1)
  - Haemorrhage [Fatal]

NARRATIVE: CASE EVENT DATE: 2019
